FAERS Safety Report 11642938 (Version 2)
Quarter: 2015Q4

REPORT INFORMATION
  Report Type: Report from Study
  Country: BR (occurrence: BR)
  Receive Date: 20151020
  Receipt Date: 20151111
  Transmission Date: 20160304
  Serious: Yes (Other)
  Sender: FDA-Public Use
  Company Number: PHHY2015BR134772

PATIENT
  Sex: Female
  Weight: 63 kg

DRUGS (4)
  1. GILENYA [Suspect]
     Active Substance: FINGOLIMOD HYDROCHLORIDE
     Dosage: 0.5 MG, QOD
     Route: 048
     Dates: start: 20150822
  2. GILENYA [Suspect]
     Active Substance: FINGOLIMOD HYDROCHLORIDE
     Indication: MULTIPLE SCLEROSIS
     Dosage: 1 DF, QD
     Route: 065
     Dates: start: 201408
  3. GILENYA [Suspect]
     Active Substance: FINGOLIMOD HYDROCHLORIDE
     Dosage: 1 DF, QD
     Route: 065
  4. GILENYA [Suspect]
     Active Substance: FINGOLIMOD HYDROCHLORIDE
     Dosage: 1 DF, ONLY DURING THE WEEK AND ON SATURDAYS AND SUNDAYS SHE DID NOT TAKE IT
     Route: 065

REACTIONS (6)
  - Headache [Recovered/Resolved]
  - Alopecia [Unknown]
  - Prescribed underdose [Unknown]
  - Lymphocyte count decreased [Recovering/Resolving]
  - Fatigue [Recovered/Resolved]
  - Dengue fever [Recovering/Resolving]
